FAERS Safety Report 26090645 (Version 2)
Quarter: 2025Q4

REPORT INFORMATION
  Report Type: Spontaneous
  Country: US (occurrence: US)
  Receive Date: 20251126
  Receipt Date: 20251208
  Transmission Date: 20260117
  Serious: No
  Sender: LUPIN
  Company Number: US-LUPIN PHARMACEUTICALS INC.-2025-10498

PATIENT
  Age: 65 Year
  Weight: 72.562 kg

DRUGS (1)
  1. ALBUTEROL SULFATE [Suspect]
     Active Substance: ALBUTEROL SULFATE
     Indication: Bronchitis
     Dosage: PRN (02-PUFFS EVERY 04 HRS AS NEEDED)

REACTIONS (6)
  - Dyspnoea [Unknown]
  - Wheezing [Not Recovered/Not Resolved]
  - Illness [Not Recovered/Not Resolved]
  - Drug dose omission by device [Unknown]
  - Device deposit issue [Unknown]
  - Wrong technique in product usage process [Unknown]
